FAERS Safety Report 6693012-9 (Version None)
Quarter: 2010Q2

REPORT INFORMATION
  Report Type: 
  Country: None (occurrence: None)
  Receive Date: 20100420
  Receipt Date: 20100405
  Transmission Date: 20101027
  Serious: Yes (Death)
  Sender: FDA-Public Use
  Company Number: A-NJ2010-35449

PATIENT
  Age: 74 Year
  Sex: Male

DRUGS (5)
  1. TRACLEER [Suspect]
     Indication: PULMONARY ARTERIAL HYPERTENSION
     Dosage: ORAL
     Route: 048
     Dates: start: 20091205, end: 20100331
  2. ALPRAZOLAM [Concomitant]
  3. AMBIEN [Concomitant]
  4. MORPHINE [Concomitant]
  5. ALDACTONE [Concomitant]

REACTIONS (1)
  - LUNG NEOPLASM MALIGNANT [None]
